FAERS Safety Report 9121325 (Version 2)
Quarter: 2013Q3

REPORT INFORMATION
  Report Type: Spontaneous
  Country: US (occurrence: US)
  Receive Date: 20130225
  Receipt Date: 20130718
  Transmission Date: 20140515
  Serious: Yes (Death, Hospitalization, Other)
  Sender: FDA-Public Use
  Company Number: US-BRISTOL-MYERS SQUIBB COMPANY-17137449

PATIENT
  Age: 74 Year
  Sex: Female

DRUGS (2)
  1. ABILIFY [Suspect]
     Dates: end: 2008
  2. SEROQUEL [Suspect]
     Dates: end: 2008

REACTIONS (22)
  - Osteoarthritis [Unknown]
  - Ischaemic cardiomyopathy [Unknown]
  - Tardive dyskinesia [Unknown]
  - White blood cell count decreased [Unknown]
  - Neuroleptic malignant syndrome [Unknown]
  - Myocardial infarction [Unknown]
  - Cerebrovascular accident [Unknown]
  - Motor dysfunction [Unknown]
  - Arteriosclerosis [Unknown]
  - Cardiomegaly [Unknown]
  - Haemorrhage [Unknown]
  - Food poisoning [Unknown]
  - Respiratory tract infection [Unknown]
  - Pneumonia [Unknown]
  - Nervous system disorder [Unknown]
  - Coma [Unknown]
  - Death [Fatal]
  - Convulsion [Unknown]
  - Asthma [Unknown]
  - Diabetes mellitus [Unknown]
  - Renal failure chronic [Unknown]
  - Hyperlipidaemia [Unknown]
